FAERS Safety Report 7225961-7 (Version None)
Quarter: 2011Q1

REPORT INFORMATION
  Report Type: 
  Country: None (occurrence: None)
  Receive Date: 20110113
  Receipt Date: 20110110
  Transmission Date: 20110831
  Serious: Yes (Other)
  Sender: FDA-Public Use
  Company Number: US-AMGEN-USASP2011000541

PATIENT

DRUGS (3)
  1. CARVEDILOL [Concomitant]
     Dosage: 6.25 MG, UNK
     Dates: start: 20101209
  2. LEVOTHYROXINE [Concomitant]
     Dosage: 50 A?G, UNK
     Dates: start: 20090731
  3. NPLATE [Suspect]
     Indication: IDIOPATHIC THROMBOCYTOPENIC PURPURA
     Dosage: 1 A?G/KG, QWK
     Route: 058
     Dates: start: 20101210

REACTIONS (4)
  - NEOPLASM MALIGNANT [None]
  - MUSCULOSKELETAL PAIN [None]
  - PAIN IN JAW [None]
  - PAIN IN EXTREMITY [None]
